FAERS Safety Report 7780196-4 (Version None)
Quarter: 2011Q3

REPORT INFORMATION
  Report Type: 
  Country: None (occurrence: None)
  Receive Date: 20110927
  Receipt Date: 20110927
  Transmission Date: 20111222
  Serious: Yes (Other)
  Sender: FDA-Public Use
  Company Number: None

PATIENT
  Age: 50 Year
  Sex: Male
  Weight: 88.45 kg

DRUGS (3)
  1. INDOMETHACIN [Suspect]
     Indication: GOUT
     Dosage: TWO -50MG-
     Route: 048
     Dates: start: 20110926, end: 20110926
  2. INDOMETHACIN [Suspect]
     Indication: PAIN
     Dosage: TWO -50MG-
     Route: 048
     Dates: start: 20110926, end: 20110926
  3. ALLOPURINOL [Concomitant]

REACTIONS (1)
  - PANIC ATTACK [None]
